FAERS Safety Report 21651663 (Version 2)
Quarter: 2022Q4

REPORT INFORMATION
  Report Type: Spontaneous
  Country: US (occurrence: US)
  Receive Date: 20221128
  Receipt Date: 20221129
  Transmission Date: 20230113
  Serious: Yes (Death, Life-Threatening, Other)
  Sender: FDA-Public Use
  Company Number: US-PFIZER INC-PV202200110013

PATIENT
  Age: 70 Year
  Sex: Male

DRUGS (1)
  1. HEPARIN SODIUM [Suspect]
     Active Substance: HEPARIN SODIUM
     Indication: Deep vein thrombosis
     Dosage: UNK
     Route: 042

REACTIONS (5)
  - Respiratory failure [Fatal]
  - Septic shock [Fatal]
  - Rectal haemorrhage [Fatal]
  - Acute kidney injury [Fatal]
  - Hyperkalaemia [Fatal]
